FAERS Safety Report 7451041-1 (Version None)
Quarter: 2011Q2

REPORT INFORMATION
  Report Type: 
  Country: None (occurrence: None)
  Receive Date: 20110502
  Receipt Date: 20110427
  Transmission Date: 20111010
  Serious: Yes (Death)
  Sender: FDA-Public Use
  Company Number: AU-ROCHE-773829

PATIENT
  Sex: Female

DRUGS (1)
  1. CEFTRIAXONE SODIUM [Suspect]
     Route: 065

REACTIONS (5)
  - HAEMORRHAGE [None]
  - HAEMATOCHEZIA [None]
  - DYSPHAGIA [None]
  - BLOOD CREATININE INCREASED [None]
  - TONGUE DISCOLOURATION [None]
